FAERS Safety Report 10491787 (Version 1)
Quarter: 2014Q4

REPORT INFORMATION
  Report Type: Spontaneous
  Country: US (occurrence: US)
  Receive Date: 20141002
  Receipt Date: 20141002
  Transmission Date: 20150528
  Serious: No
  Sender: FDA-Public Use
  Company Number: US-GLAXOSMITHKLINE-A1059484A

PATIENT
  Age: 42 Year
  Sex: Female

DRUGS (2)
  1. ADVAIR HFA [Suspect]
     Active Substance: FLUTICASONE PROPIONATE\SALMETEROL XINAFOATE
     Indication: ASTHMA
     Route: 065
     Dates: start: 20120208
  2. VENTOLIN HFA [Concomitant]
     Active Substance: ALBUTEROL SULFATE
     Dates: start: 20120208

REACTIONS (3)
  - Physiotherapy [Unknown]
  - Asthma [Unknown]
  - Influenza [Unknown]
